FAERS Safety Report 22040397 (Version 1)
Quarter: 2023Q1

REPORT INFORMATION
  Report Type: Spontaneous
  Country: US (occurrence: None)
  Receive Date: 20230224
  Receipt Date: 20230224
  Transmission Date: 20230417
  Serious: Yes (Other)
  Sender: FDA-Public Use
  Company Number: None

PATIENT
  Age: 6 Year
  Sex: Male
  Weight: 31.3 kg

DRUGS (10)
  1. FLUCONAZOLE [Suspect]
     Active Substance: FLUCONAZOLE
     Indication: Candida infection
     Dosage: FREQUENCY : DAILY;?OTHER ROUTE : G-TUBE;?
     Route: 050
     Dates: start: 20230121, end: 20230123
  2. GUANFACINE [Concomitant]
     Active Substance: GUANFACINE
  3. SERTRALINE [Concomitant]
     Active Substance: SERTRALINE HYDROCHLORIDE
  4. CLOBAZAM [Concomitant]
     Active Substance: CLOBAZAM
  5. CETIRIZINE [Concomitant]
     Active Substance: CETIRIZINE HYDROCHLORIDE
  6. TOPIRAMATE [Concomitant]
     Active Substance: TOPIRAMATE
  7. GABAPENTIN [Concomitant]
     Active Substance: GABAPENTIN
  8. DIAZEPAM [Concomitant]
     Active Substance: DIAZEPAM
  9. MORPHINE [Concomitant]
     Active Substance: MORPHINE
  10. METOCLOPRAMIDE [Concomitant]
     Active Substance: METOCLOPRAMIDE

REACTIONS (6)
  - Insomnia [None]
  - Confusional state [None]
  - Headache [None]
  - Hallucination, visual [None]
  - Agitation [None]
  - Inhibitory drug interaction [None]

NARRATIVE: CASE EVENT DATE: 20230122
